FAERS Safety Report 23755475 (Version 1)
Quarter: 2024Q2

REPORT INFORMATION
  Report Type: Spontaneous
  Country: US (occurrence: US)
  Receive Date: 20240418
  Receipt Date: 20240418
  Transmission Date: 20240715
  Serious: No
  Sender: FDA-Public Use
  Company Number: US-AMGEN-USASP2024076013

PATIENT
  Age: 61 Year
  Sex: Male

DRUGS (1)
  1. REPATHA [Suspect]
     Active Substance: EVOLOCUMAB
     Indication: Blood cholesterol abnormal
     Dosage: 140 MILLIGRAM, Q2WK
     Route: 065
     Dates: start: 2024

REACTIONS (5)
  - Decreased appetite [Unknown]
  - Drug dose omission by device [Unknown]
  - Limb discomfort [Unknown]
  - Device difficult to use [Unknown]
  - Apathy [Unknown]

NARRATIVE: CASE EVENT DATE: 20240410
